FAERS Safety Report 10032622 (Version 3)
Quarter: 2014Q3

REPORT INFORMATION
  Report Type: Spontaneous
  Country: US (occurrence: US)
  Receive Date: 20140324
  Receipt Date: 20140905
  Transmission Date: 20150326
  Serious: Yes (Hospitalization, Other)
  Sender: FDA-Public Use
  Company Number: US-GLAXOSMITHKLINE-A1065611A

PATIENT
  Age: 70 Year
  Sex: Female

DRUGS (7)
  1. LOTREL [Concomitant]
     Active Substance: AMLODIPINE BESYLATE\BENAZEPRIL HYDROCHLORIDE
  2. ALLOPURINOL. [Concomitant]
     Active Substance: ALLOPURINOL
  3. ZANTAC [Concomitant]
     Active Substance: RANITIDINE HYDROCHLORIDE
  4. VOTRIENT [Suspect]
     Active Substance: PAZOPANIB HYDROCHLORIDE
     Indication: RENAL CELL CARCINOMA
     Dosage: 600MG PER DAY
     Route: 048
     Dates: start: 20140219
  5. LASIX [Concomitant]
     Active Substance: FUROSEMIDE
  6. PRANDIN [Concomitant]
     Active Substance: REPAGLINIDE
  7. TYLENOL [Concomitant]
     Active Substance: ACETAMINOPHEN

REACTIONS (10)
  - Dysuria [Unknown]
  - Haemorrhage urinary tract [Unknown]
  - Headache [Unknown]
  - Blood urine present [Unknown]
  - Urinary bladder haemorrhage [Unknown]
  - Renal haemorrhage [Unknown]
  - Haematuria [Unknown]
  - Dizziness [Unknown]
  - Haemorrhage [Unknown]
  - Renal neoplasm [Unknown]

NARRATIVE: CASE EVENT DATE: 2014
